FAERS Safety Report 6680284-X (Version None)
Quarter: 2010Q2

REPORT INFORMATION
  Report Type: 
  Country: None (occurrence: None)
  Receive Date: 20100413
  Receipt Date: 20100412
  Transmission Date: 20101027
  Serious: Yes (Disabling)
  Sender: FDA-Public Use
  Company Number: US-MERCK-0706USA03470

PATIENT
  Age: 65 Year
  Sex: Female

DRUGS (3)
  1. FOSAMAX [Suspect]
     Indication: OSTEOPENIA
     Route: 048
     Dates: start: 19950101
  2. CALCIUM (UNSPECIFIED) [Concomitant]
     Route: 065
  3. HORMONES (UNSPECIFIED) [Concomitant]
     Route: 065
     Dates: end: 20060101

REACTIONS (4)
  - BONE DENSITY DECREASED [None]
  - OSTEOPENIA [None]
  - OSTEOPOROSIS [None]
  - SPINAL COLUMN STENOSIS [None]
